FAERS Safety Report 5164516-5 (Version None)
Quarter: 2006Q4

REPORT INFORMATION
  Report Type: 
  Country: None (occurrence: None)
  Receive Date: 20061205
  Receipt Date: 20061120
  Transmission Date: 20070319
  Serious: Yes (Life-Threatening)
  Sender: FDA-Public Use
  Company Number: FR-BAYER-200611105BFR

PATIENT
  Age: 68 Year
  Sex: Male

DRUGS (6)
  1. CIPROFLOXACIN [Suspect]
     Indication: INFECTION
     Dosage: TOTAL DAILY DOSE: 1 G  UNIT DOSE: 500 MG
     Route: 048
     Dates: start: 20061106, end: 20061109
  2. AUGMENTIN '125' [Suspect]
     Indication: INFECTION
     Route: 042
     Dates: start: 20061106, end: 20061109
  3. TRIFLUCAN [Suspect]
     Indication: INFECTION
     Route: 042
     Dates: start: 20061106, end: 20061109
  4. ETHYOL [Suspect]
     Indication: UNEVALUABLE EVENT
     Route: 042
     Dates: start: 20060928, end: 20061106
  5. ACETAMINOPHEN [Suspect]
     Indication: UNEVALUABLE EVENT
     Route: 042
     Dates: start: 20061106, end: 20061107
  6. PRIMPERAN TAB [Suspect]
     Indication: NAUSEA
     Dosage: TOTAL DAILY DOSE: 60 MG  UNIT DOSE: 10 MG
     Route: 042
     Dates: start: 20061106, end: 20061106

REACTIONS (2)
  - THERAPY NON-RESPONDER [None]
  - TOXIC EPIDERMAL NECROLYSIS [None]
